FAERS Safety Report 4986978-6 (Version None)
Quarter: 2006Q2

REPORT INFORMATION
  Report Type: 
  Country: None (occurrence: None)
  Receive Date: 20060427
  Receipt Date: 20060427
  Transmission Date: 20061013
  Serious: Yes (Other)
  Sender: FDA-Public Use
  Company Number: None

PATIENT
  Sex: Male
  Weight: 82.5547 kg

DRUGS (2)
  1. AMNESTEEM [Suspect]
     Indication: ACNE
     Dosage: 40 MG -3 TIMES DAILY
     Dates: start: 20051013
  2. AMNESTEEM [Suspect]
     Indication: ACNE
     Dosage: 40 MG -3 TIMES DAILY
     Dates: start: 20060216

REACTIONS (1)
  - CONVULSION [None]
